FAERS Safety Report 19873951 (Version 1)
Quarter: 2021Q3

REPORT INFORMATION
  Report Type: Spontaneous
  Country: US (occurrence: US)
  Receive Date: 20210922
  Receipt Date: 20210922
  Transmission Date: 20211014
  Serious: Yes (Death, Hospitalization)
  Sender: FDA-Public Use
  Company Number: NVSC2021US210680

PATIENT
  Age: 79 Year
  Sex: Male

DRUGS (3)
  1. ZOFRAN [Suspect]
     Active Substance: ONDANSETRON HYDROCHLORIDE
     Indication: NAUSEA
     Dosage: UNK
     Route: 065
  2. CARBIDOPA LEVODOPA [Suspect]
     Active Substance: CARBIDOPA\LEVODOPA
     Indication: PARKINSON^S DISEASE
     Dosage: UNK UNK, QID (25?100 MG)
     Route: 065
  3. TIGAN [Suspect]
     Active Substance: TRIMETHOBENZAMIDE HYDROCHLORIDE
     Indication: PRODUCT USED FOR UNKNOWN INDICATION
     Dosage: 300 MG
     Route: 065

REACTIONS (13)
  - Asthenia [Unknown]
  - Sudden death [Fatal]
  - Cardiac disorder [Unknown]
  - Dehydration [Unknown]
  - Drug ineffective [Unknown]
  - Electrolyte imbalance [Unknown]
  - Peripheral swelling [Unknown]
  - Malnutrition [Unknown]
  - Atrial fibrillation [Unknown]
  - Constipation [Unknown]
  - Weight decreased [Unknown]
  - Abdominal pain [Unknown]
  - Dyspnoea [Unknown]

NARRATIVE: CASE EVENT DATE: 20210321
